FAERS Safety Report 4485874-0 (Version None)
Quarter: 2004Q3

REPORT INFORMATION
  Report Type: 
  Country: None (occurrence: None)
  Receive Date: 20040921
  Receipt Date: 20030924
  Transmission Date: 20050211
  Serious: Yes (Death, Hospitalization, Other)
  Sender: FDA-Public Use
  Company Number: 163-20785-03100041

PATIENT
  Age: 36 Year
  Sex: Female
  Weight: 45 kg

DRUGS (5)
  1. THALOMID [Suspect]
     Indication: MULTIPLE MYELOMA
     Dates: start: 20020531, end: 20021111
  2. PREDNISONE [Suspect]
     Indication: MULTIPLE MYELOMA
     Dosage: 80 MG, QD, ORAL
     Route: 048
     Dates: start: 20021112, end: 20030904
  3. DECADRON [Suspect]
     Indication: MULTIPLE MYELOMA
     Dosage: 4 MG, 10 TABS QD X 4 28 D
     Dates: start: 20020531, end: 20021111
  4. VINCRISTINE [Suspect]
     Indication: MULTIPLE MYELOMA
     Dosage: 2 MG
     Dates: start: 20020531, end: 20021111
  5. DOXIL [Suspect]
     Indication: MULTIPLE MYELOMA
     Dates: start: 20020531, end: 20021111

REACTIONS (16)
  - ABDOMINAL PAIN [None]
  - ATRIAL FIBRILLATION [None]
  - BUNDLE BRANCH BLOCK [None]
  - CONVULSION [None]
  - CYTOMEGALOVIRUS VIRAEMIA [None]
  - DEATH [None]
  - DIARRHOEA [None]
  - FAILURE TO THRIVE [None]
  - GRAFT VERSUS HOST DISEASE [None]
  - HEPATIC ENZYME INCREASED [None]
  - LIVER FUNCTION TEST ABNORMAL [None]
  - NAUSEA [None]
  - PULMONARY EMBOLISM [None]
  - QRS AXIS ABNORMAL [None]
  - VENTRICULAR FIBRILLATION [None]
  - VOMITING [None]
